FAERS Safety Report 10931241 (Version 2)
Quarter: 2015Q2

REPORT INFORMATION
  Report Type: Spontaneous
  Country: US (occurrence: US)
  Receive Date: 20150319
  Receipt Date: 20150622
  Transmission Date: 20150821
  Serious: No
  Sender: FDA-Public Use
  Company Number: US-CELGENEUS-USA-2015033641

PATIENT
  Age: 46 Year
  Sex: Female

DRUGS (11)
  1. ENBREL [Concomitant]
     Active Substance: ETANERCEPT
     Indication: PSORIASIS
     Dosage: 25 MILLIGRAM
     Route: 065
     Dates: start: 20120314
  2. TACLONEX [Concomitant]
     Active Substance: BETAMETHASONE DIPROPIONATE\CALCIPOTRIENE\CALCIPOTRIENE HYDRATE
     Indication: PSORIASIS
     Dosage: 0.005-0.064%
     Route: 065
     Dates: start: 20120626
  3. TUBERSOL [Concomitant]
     Active Substance: TUBERCULIN PURIFIED PROTEIN DERIVATIVE
     Indication: PSORIASIS
     Dosage: 5UNIT/0.1ML
     Route: 065
     Dates: start: 20141201
  4. CLOBEX [Concomitant]
     Active Substance: CLOBETASOL PROPIONATE
     Indication: PSORIASIS
     Dosage: 120 MILLILITER
     Route: 065
     Dates: start: 20120626
  5. TUBERCULIN NOS [Concomitant]
     Active Substance: TUBERCULIN PURIFIED PROTEIN DERIVATIVE
     Indication: PSORIASIS
     Dosage: 1 MILLILITER
     Route: 065
     Dates: start: 20141201
  6. TRIAMCINOLONE ACETONIDE. [Concomitant]
     Active Substance: TRIAMCINOLONE ACETONIDE
     Indication: PSORIASIS
     Dosage: 160 GRAM
     Route: 065
     Dates: start: 20140512
  7. OTEZLA [Suspect]
     Active Substance: APREMILAST
     Indication: PSORIASIS
     Dosage: 10MG, 20MG, AND 30MG
     Route: 048
     Dates: start: 20141126, end: 20150127
  8. CALCIPOTRIENE. [Concomitant]
     Active Substance: CALCIPOTRIENE
     Indication: PSORIASIS
     Dosage: 240 GRAM
     Route: 065
     Dates: start: 20120626
  9. DERMAZINC [Concomitant]
     Indication: PSORIASIS
     Route: 061
     Dates: start: 20120626
  10. DOVONEX [Concomitant]
     Active Substance: CALCIPOTRIENE
     Indication: PSORIASIS
     Dosage: 240 MILLIGRAM
     Route: 065
     Dates: start: 20080730
  11. OTEZLA [Suspect]
     Active Substance: APREMILAST
     Route: 048
     Dates: start: 20150127, end: 20150313

REACTIONS (1)
  - Drug ineffective [Recovered/Resolved]

NARRATIVE: CASE EVENT DATE: 20141126
